FAERS Safety Report 21023608 (Version 2)
Quarter: 2022Q3

REPORT INFORMATION
  Report Type: Spontaneous
  Country: US (occurrence: None)
  Receive Date: 20220629
  Receipt Date: 20220701
  Transmission Date: 20221027
  Serious: Yes (Hospitalization, Other)
  Sender: FDA-Public Use
  Company Number: US-ROCHE-3121648

PATIENT
  Sex: Female

DRUGS (1)
  1. ERIVEDGE [Suspect]
     Active Substance: VISMODEGIB
     Indication: Basal cell carcinoma
     Route: 048
     Dates: start: 202204

REACTIONS (12)
  - Alopecia [Unknown]
  - Weight decreased [Unknown]
  - Dysgeusia [Unknown]
  - Ocular icterus [Unknown]
  - Hepatic enzyme increased [Unknown]
  - Pyrexia [Unknown]
  - Chills [Unknown]
  - Syncope [Unknown]
  - Drug intolerance [Unknown]
  - Pancreatic enzymes increased [Unknown]
  - Dysuria [Unknown]
  - Hyperhidrosis [Unknown]
